FAERS Safety Report 8579065-1 (Version None)
Quarter: 2012Q3

REPORT INFORMATION
  Report Type: 
  Country: None (occurrence: None)
  Receive Date: 20120808
  Receipt Date: 20091128
  Transmission Date: 20120928
  Serious: Yes (Other)
  Sender: FDA-Public Use
  Company Number: PT-ROCHE-1092478

PATIENT
  Age: 58 Year
  Sex: Female

DRUGS (5)
  1. ROFERON-A [Suspect]
     Indication: HEPATITIS C
     Route: 065
  2. INTERFERON ALFA-2B [Suspect]
     Indication: HEPATITIS C
     Route: 065
     Dates: start: 20040101
  3. COPEGUS [Suspect]
     Dosage: DOSE ADJUSTED
  4. COPEGUS [Suspect]
     Indication: HEPATITIS C
     Route: 065
     Dates: start: 20040101
  5. ROFERON-A [Suspect]
     Dosage: DOSE ADJUSTED

REACTIONS (4)
  - ANAEMIA [None]
  - UNEVALUABLE EVENT [None]
  - NEUTROPENIA [None]
  - PLATELET COUNT DECREASED [None]
